FAERS Safety Report 10035867 (Version 5)
Quarter: 2016Q1

REPORT INFORMATION
  Report Type: Spontaneous
  Country: US (occurrence: US)
  Receive Date: 20140325
  Receipt Date: 20160204
  Transmission Date: 20160525
  Serious: Yes (Disabling, Other)
  Sender: FDA-Public Use
  Company Number: US-PFIZER INC-2014081299

PATIENT
  Age: 64 Year
  Sex: Female
  Weight: 71 kg

DRUGS (2)
  1. XALATAN [Suspect]
     Active Substance: LATANOPROST
     Indication: GLAUCOMA
     Dosage: UNK, DAILY
     Route: 047
     Dates: start: 2008
  2. XALATAN [Suspect]
     Active Substance: LATANOPROST
     Dosage: ONE DROP EVERY NIGHT BEFORE BED)
     Route: 047

REACTIONS (6)
  - Ocular neoplasm [Recovered/Resolved]
  - Visual acuity reduced [Unknown]
  - Brain neoplasm [Recovered/Resolved]
  - Muscle disorder [Unknown]
  - Nervous system disorder [Unknown]
  - Eye pain [Unknown]

NARRATIVE: CASE EVENT DATE: 2013
